FAERS Safety Report 5200861-2 (Version None)
Quarter: 2007Q1

REPORT INFORMATION
  Report Type: 
  Country: None (occurrence: None)
  Receive Date: 20070103
  Receipt Date: 20061220
  Transmission Date: 20070707
  Serious: Yes (Other)
  Sender: FDA-Public Use
  Company Number: 2006BH015212

PATIENT
  Age: 5 Month
  Sex: Male

DRUGS (1)
  1. CEFTRIAXONE [Suspect]
     Indication: CELLULITIS
     Dosage: 1 GM

REACTIONS (5)
  - C-REACTIVE PROTEIN INCREASED [None]
  - LEUKOCYTOCLASTIC VASCULITIS [None]
  - OEDEMA [None]
  - PURPURA [None]
  - WHITE BLOOD CELL COUNT INCREASED [None]
